FAERS Safety Report 4379184-X (Version None)
Quarter: 2004Q2

REPORT INFORMATION
  Report Type: 
  Country: None (occurrence: None)
  Receive Date: 20040610
  Receipt Date: 20040528
  Transmission Date: 20050107
  Serious: Yes (Other)
  Sender: FDA-Public Use
  Company Number: ENTC2004-0093

PATIENT
  Age: 80 Year
  Sex: Female

DRUGS (6)
  1. STALEVO 100 [Suspect]
     Indication: PARKINSON'S DISEASE
     Dosage: 100 MG/ 25 MG/ 200 MG TWICE DAILY, ORAL
     Route: 048
     Dates: start: 20040412, end: 20040428
  2. NORVASC [Concomitant]
  3. VASOTEC [Concomitant]
  4. SINEMET [Concomitant]
  5. MIRAPEX [Concomitant]
  6. LIPITOR [Concomitant]

REACTIONS (3)
  - EYELID PAIN [None]
  - HEADACHE [None]
  - RETINAL HAEMORRHAGE [None]
